FAERS Safety Report 14968801 (Version 1)
Quarter: 2018Q2

REPORT INFORMATION
  Report Type: Spontaneous
  Country: CN (occurrence: CN)
  Receive Date: 20180604
  Receipt Date: 20180604
  Transmission Date: 20180711
  Serious: Yes (Other)
  Sender: FDA-Public Use
  Company Number: CN-PFIZER INC-2018221397

PATIENT
  Age: 55 Year
  Sex: Female
  Weight: 54 kg

DRUGS (3)
  1. SODIUM CHLORIDE. [Concomitant]
     Active Substance: SODIUM CHLORIDE
     Indication: VEHICLE SOLUTION USE
     Dosage: 100 ML, 1X/DAY
     Route: 041
     Dates: start: 20180110, end: 20180110
  2. PHARMORUBICIN [Suspect]
     Active Substance: EPIRUBICIN
     Indication: BREAST MASS
     Dosage: 0.8 G, 1X/DAY
     Route: 041
     Dates: start: 20180110, end: 20180110
  3. CYCLOPHOSPHAMIDE. [Suspect]
     Active Substance: CYCLOPHOSPHAMIDE
     Indication: BREAST MASS
     Dosage: 0.8 G, 1X/DAY
     Route: 041
     Dates: start: 20180110, end: 20180110

REACTIONS (3)
  - Hypoaesthesia [Recovering/Resolving]
  - Pyrexia [Recovering/Resolving]
  - Chest discomfort [Recovering/Resolving]

NARRATIVE: CASE EVENT DATE: 20180110
